FAERS Safety Report 18265810 (Version 3)
Quarter: 2025Q1

REPORT INFORMATION
  Report Type: Spontaneous
  Country: US (occurrence: US)
  Receive Date: 20200915
  Receipt Date: 20250131
  Transmission Date: 20250409
  Serious: Yes (Other)
  Sender: ROCHE
  Company Number: US-ROCHE-2674486

PATIENT
  Age: 49 Year
  Sex: Male

DRUGS (1)
  1. OCRELIZUMAB [Suspect]
     Active Substance: OCRELIZUMAB
     Indication: Relapsing-remitting multiple sclerosis
     Route: 065
     Dates: start: 201802

REACTIONS (5)
  - Hemiparesis [Unknown]
  - Dysarthria [Unknown]
  - Magnetic resonance imaging head abnormal [Unknown]
  - Hemihypoaesthesia [Unknown]
  - Lymphocytosis [Unknown]
